FAERS Safety Report 9265622 (Version 2)
Quarter: 2013Q2

REPORT INFORMATION
  Report Type: Spontaneous
  Country: DK (occurrence: DK)
  Receive Date: 20130501
  Receipt Date: 20130517
  Transmission Date: 20140414
  Serious: Yes (Other)
  Sender: FDA-Public Use
  Company Number: DK-MYLANLABS-2013S1009227

PATIENT
  Age: 82 Year
  Sex: Female

DRUGS (4)
  1. ALENDRONATE [Suspect]
     Indication: OSTEOPOROSIS
     Dates: start: 20130225
  2. ACETYLSALICYLIC ACID [Concomitant]
     Indication: ANTIPLATELET THERAPY
  3. LOSARTAN [Concomitant]
     Indication: BLOOD PRESSURE
  4. ATORVASTATIN [Concomitant]
     Indication: BLOOD CHOLESTEROL

REACTIONS (5)
  - Confusional state [Recovered/Resolved]
  - Vision blurred [Recovered/Resolved]
  - Visual impairment [Recovered/Resolved]
  - Discomfort [Recovered/Resolved]
  - Dizziness [Recovered/Resolved]
